FAERS Safety Report 13864434 (Version 1)
Quarter: 2017Q3

REPORT INFORMATION
  Report Type: Spontaneous
  Country: DE (occurrence: DE)
  Receive Date: 20170814
  Receipt Date: 20170814
  Transmission Date: 20171127
  Serious: Yes (Hospitalization, Other)
  Sender: FDA-Public Use
  Company Number: DE-JNJFOC-20170811295

PATIENT
  Sex: Female
  Weight: 85 kg

DRUGS (1)
  1. TRAMAL [Suspect]
     Active Substance: TRAMADOL
     Indication: PRODUCT USED FOR UNKNOWN INDICATION
     Route: 065

REACTIONS (6)
  - Vomiting [Unknown]
  - Syncope [Unknown]
  - Nausea [Unknown]
  - Therapeutic procedure [Unknown]
  - Laceration [Unknown]
  - Seizure [Unknown]
